FAERS Safety Report 20591479 (Version 1)
Quarter: 2022Q1

REPORT INFORMATION
  Report Type: Spontaneous
  Country: US (occurrence: US)
  Receive Date: 20220314
  Receipt Date: 20220314
  Transmission Date: 20220423
  Serious: Yes (Other)
  Sender: FDA-Public Use
  Company Number: US-INTRA-CELLULAR THERAPIES, INC.-2022ICT00189

PATIENT
  Age: 30 Year
  Sex: Female

DRUGS (15)
  1. CAPLYTA [Suspect]
     Active Substance: LUMATEPERONE
     Indication: Bipolar disorder
     Dosage: 42 MG, 1X/DAY
     Route: 048
     Dates: start: 20220222
  2. CAPLYTA [Suspect]
     Active Substance: LUMATEPERONE
     Indication: Hallucination, auditory
  3. CLONIDINE HYDROCHLORIDE [Concomitant]
     Active Substance: CLONIDINE HYDROCHLORIDE
     Dosage: 0.1 MG, 1X/DAY
     Route: 048
     Dates: start: 20220126
  4. DESOGESTREL\ETHINYL ESTRADIOL [Concomitant]
     Active Substance: DESOGESTREL\ETHINYL ESTRADIOL
     Dosage: 1 TABLETS, 1X/DAY
     Route: 048
  5. DIAZEPAM [Concomitant]
     Active Substance: DIAZEPAM
     Dosage: UNK
     Route: 067
     Dates: start: 20210804
  6. DULOXETINE [Concomitant]
     Active Substance: DULOXETINE
     Dosage: 20 MG, 1X/DAY
     Route: 048
     Dates: start: 20220222
  7. EFFEXOR XR [Concomitant]
     Active Substance: VENLAFAXINE HYDROCHLORIDE
     Dosage: 75 MG, 1X/DAY
     Route: 048
     Dates: start: 20220222
  8. GUANFACINE [Concomitant]
     Active Substance: GUANFACINE
     Dosage: 1 MG, 1X/DAY
     Route: 048
     Dates: start: 20220222
  9. LISINOPRIL [Concomitant]
     Active Substance: LISINOPRIL
     Dosage: 20 MG, 1X/DAY
     Route: 048
     Dates: start: 20220222
  10. MIRALAX [Concomitant]
     Active Substance: POLYETHYLENE GLYCOL 3350
     Dosage: 17 G, 1X/DAY
     Route: 048
     Dates: start: 20220222
  11. MOBIC [Concomitant]
     Active Substance: MELOXICAM
     Dosage: 15 MG, 1X/DAY
     Route: 048
     Dates: start: 20220222
  12. OZEMPIC [Concomitant]
     Active Substance: SEMAGLUTIDE
     Dosage: 1 MG, 1X/WEEK
     Route: 058
     Dates: start: 20220226
  13. QULIPTA [Concomitant]
     Active Substance: ATOGEPANT
     Dosage: 60 MG, 1X/DAY
     Route: 048
     Dates: start: 20220222
  14. SEROQUEL [Concomitant]
     Active Substance: QUETIAPINE FUMARATE
     Dosage: 25 MG, 1 NIGHTLY
     Route: 048
     Dates: start: 20220209
  15. UBRELVY [Concomitant]
     Active Substance: UBROGEPANT
     Dosage: 100 MG, 1X/DAY AS NEEDED
     Route: 048
     Dates: start: 20220222

REACTIONS (5)
  - Dysarthria [Unknown]
  - Drooling [Unknown]
  - Catatonia [Unknown]
  - Pseudostroke [Unknown]
  - Hypersensitivity [Unknown]

NARRATIVE: CASE EVENT DATE: 20220301
